FAERS Safety Report 5149489-3 (Version None)
Quarter: 2006Q4

REPORT INFORMATION
  Report Type: 
  Country: None (occurrence: None)
  Receive Date: 20061113
  Receipt Date: 20061107
  Transmission Date: 20070319
  Serious: Yes (Death)
  Sender: FDA-Public Use
  Company Number: PHRM2006FR03007

PATIENT
  Age: 70 Year
  Sex: Male

DRUGS (2)
  1. SANDIMMUNE [Suspect]
     Indication: PSORIASIS
     Dosage: ONE CURE
     Route: 048
     Dates: start: 19870101, end: 19870101
  2. SANDIMMUNE [Suspect]
     Dosage: ONE CURE
     Route: 048
     Dates: start: 19950101, end: 19950101

REACTIONS (2)
  - HEPATIC FAILURE [None]
  - HEPATIC NEOPLASM MALIGNANT [None]
